FAERS Safety Report 6599991-2 (Version None)
Quarter: 2010Q1

REPORT INFORMATION
  Report Type: 
  Country: None (occurrence: None)
  Receive Date: 20100224
  Receipt Date: 20100212
  Transmission Date: 20100710
  Serious: Yes (Other)
  Sender: FDA-Public Use
  Company Number: SE-GENENTECH-297334

PATIENT
  Age: 72 Year
  Sex: Female

DRUGS (4)
  1. LUCENTIS [Suspect]
     Indication: MACULAR DEGENERATION
     Dosage: 10 MG/ML, UNK
     Route: 031
     Dates: start: 20090901
  2. LUCENTIS [Suspect]
     Dosage: UNK
     Route: 031
     Dates: start: 20091027
  3. TENORMIN [Concomitant]
     Indication: DRUG USE FOR UNKNOWN INDICATION
  4. TROMBYL [Concomitant]
     Indication: DRUG USE FOR UNKNOWN INDICATION

REACTIONS (1)
  - RETINAL PIGMENT EPITHELIAL TEAR [None]
